FAERS Safety Report 9264752 (Version 2)
Quarter: 2013Q2

REPORT INFORMATION
  Report Type: Spontaneous
  Country: US (occurrence: None)
  Receive Date: 20130426
  Receipt Date: 20130513
  Transmission Date: 20140414
  Serious: Yes (Other)
  Sender: FDA-Public Use
  Company Number: KAD201304-000478

PATIENT
  Sex: Female

DRUGS (2)
  1. RIBASPHERE [Suspect]
     Dates: end: 20120821
  2. PEGINTRON [Suspect]

REACTIONS (5)
  - Exposure during pregnancy [None]
  - Abortion induced [None]
  - Exposure via body fluid [None]
  - Maternal exposure before pregnancy [None]
  - Pregnancy [None]
